FAERS Safety Report 25392798 (Version 1)
Quarter: 2025Q2

REPORT INFORMATION
  Report Type: Spontaneous
  Country: US (occurrence: US)
  Receive Date: 20250603
  Receipt Date: 20250603
  Transmission Date: 20250716
  Serious: No
  Sender: MILLICENT HOLDINGS
  Company Number: US-Millicent Holdings Ltd.-MILL20250231

PATIENT
  Age: 51 Year
  Sex: Female

DRUGS (1)
  1. FEMRING [Suspect]
     Active Substance: ESTRADIOL ACETATE
     Indication: Menopausal symptoms
     Route: 067

REACTIONS (3)
  - Therapeutic product effect decreased [Unknown]
  - Menopausal symptoms [Unknown]
  - Oestradiol decreased [Unknown]

NARRATIVE: CASE EVENT DATE: 20250501
